FAERS Safety Report 5531649-0 (Version None)
Quarter: 2007Q4

REPORT INFORMATION
  Report Type: 
  Country: None (occurrence: None)
  Receive Date: 20071128
  Receipt Date: 20071116
  Transmission Date: 20080405
  Serious: Yes (Life-Threatening)
  Sender: FDA-Public Use
  Company Number: PHFR2007GB03359

PATIENT
  Age: 19 Year
  Sex: Female

DRUGS (14)
  1. CYCLOSPORINE [Suspect]
  2. OMEPRAZOLE [Suspect]
  3. ONDANSETRON [Suspect]
     Dosage: 8 MG, TID, INTRAVENOUS
     Route: 042
  4. ACYCLOVIR [Suspect]
  5. ALLOPURINOL [Suspect]
     Dosage: 300 MG, QD, ORAL
     Route: 048
  6. CASPOFUNGIN(CASPOFUNGIN) [Suspect]
     Dosage: 70 MG, QD, INTRAVENOUS
     Route: 042
  7. CHLORPHENAMINE(CHLORPHENAMINE) [Suspect]
     Dosage: 10 MG, QID, INTRAVENOUS
     Route: 042
  8. ETOPOSIDE [Suspect]
     Dosage: INTRAVENOUS
     Route: 042
     Dates: start: 20070915, end: 20070915
  9. KETALAR [Suspect]
     Indication: PAIN
     Dosage: 6MLS / 1 HOUR, INTRAVENOUS
     Route: 042
     Dates: start: 20070921, end: 20070928
  10. MORPHINE [Suspect]
     Dosage: INTRAVENOUS
     Route: 042
  11. NORETHISTERONE(NORETHISTERONE) [Suspect]
     Dosage: 5 MG, TID, ORAL
     Route: 048
  12. ACETAMINOPHEN [Suspect]
     Dosage: INTRAVENOUS
     Route: 042
  13. PIPERACILLIN SODIUM AND TAZOBACTAM SODIUM [Suspect]
     Dosage: 4.5 MG, TID, INTRAVENOUS
     Route: 042
  14. VORICONAZOLE(VORICONAZOLE) [Suspect]
     Dosage: 200 MG, BID, ORAL
     Route: 048

REACTIONS (6)
  - ALANINE AMINOTRANSFERASE INCREASED [None]
  - BLOOD ALKALINE PHOSPHATASE INCREASED [None]
  - BLOOD BILIRUBIN INCREASED [None]
  - DILATATION INTRAHEPATIC DUCT ACQUIRED [None]
  - HEPATOTOXICITY [None]
  - VENOOCCLUSIVE LIVER DISEASE [None]
